FAERS Safety Report 5892560-9 (Version None)
Quarter: 2008Q3

REPORT INFORMATION
  Report Type: 
  Country: None (occurrence: None)
  Receive Date: 20080923
  Receipt Date: 20080904
  Transmission Date: 20090109
  Serious: Yes (Other)
  Sender: FDA-Public Use
  Company Number: CA-BAYER-200813877NA

PATIENT
  Age: 42 Year
  Sex: Male
  Weight: 91 kg

DRUGS (4)
  1. CIPRO XR [Suspect]
     Indication: URINARY TRACT INFECTION
     Route: 048
  2. CIPRO [Suspect]
  3. CRESTOR [Concomitant]
     Route: 048
  4. CIPROFLOXACIN [Concomitant]

REACTIONS (3)
  - DEPRESSION [None]
  - SUICIDAL IDEATION [None]
  - THINKING ABNORMAL [None]
